FAERS Safety Report 5827375-0 (Version None)
Quarter: 2008Q3

REPORT INFORMATION
  Report Type: 
  Country: None (occurrence: None)
  Receive Date: 20080730
  Receipt Date: 20080723
  Transmission Date: 20090109
  Serious: Yes (Death)
  Sender: FDA-Public Use
  Company Number: FR-GENENTECH-265207

PATIENT

DRUGS (2)
  1. ACTIVASE [Suspect]
     Indication: CEREBRAL ARTERY OCCLUSION
     Dosage: 0.6 MG, UNK
     Route: 042
  2. ACTIVASE [Suspect]
     Route: 013

REACTIONS (1)
  - DEATH [None]
